FAERS Safety Report 9147210 (Version 1)
Quarter: 2013Q1

REPORT INFORMATION
  Report Type: Spontaneous
  Country: ES (occurrence: ES)
  Receive Date: 20130307
  Receipt Date: 20130307
  Transmission Date: 20140127
  Serious: Yes (Death)
  Sender: FDA-Public Use
  Company Number: ES-BAYER-2013-029082

PATIENT
  Age: 85 Year
  Sex: Female

DRUGS (8)
  1. ADIRO 100 [Suspect]
     Indication: CARDIOVASCULAR EVENT PROPHYLAXIS
     Route: 048
     Dates: start: 20101025, end: 20120416
  2. ALENDRONIC ACID [Concomitant]
     Dosage: 70 MG, OW
     Route: 048
     Dates: start: 20101025, end: 20120416
  3. VENLAFAXINE [Concomitant]
     Route: 048
     Dates: start: 20101025, end: 20120416
  4. DULOXETINE HYDROCHLORIDE [Concomitant]
     Dosage: 30 MG, TID
     Route: 048
     Dates: start: 20120303, end: 20120416
  5. AMERIDE [Concomitant]
     Dosage: .5 DF, TID
     Route: 048
     Dates: start: 20101025, end: 20120416
  6. LEXATIN [Concomitant]
     Dosage: 1.5 MG, QD
     Route: 048
     Dates: start: 20101025, end: 20120416
  7. ENALAPRIL [Concomitant]
     Dosage: 20 MG, QD
     Route: 048
     Dates: start: 20101025, end: 20120416
  8. MOVICOL [Concomitant]
     Route: 048
     Dates: start: 20120303, end: 20120416

REACTIONS (1)
  - Upper gastrointestinal haemorrhage [Fatal]
